FAERS Safety Report 10059338 (Version 2)
Quarter: 2014Q3

REPORT INFORMATION
  Report Type: Spontaneous
  Country: US (occurrence: US)
  Receive Date: 20140404
  Receipt Date: 20140813
  Transmission Date: 20150326
  Serious: No
  Sender: FDA-Public Use
  Company Number: US-BAYER-2014-049163

PATIENT
  Age: 30 Year
  Sex: Female
  Weight: 73.47 kg

DRUGS (3)
  1. MIRENA [Suspect]
     Active Substance: LEVONORGESTREL
     Indication: CONTRACEPTION
     Dosage: 20 MCG/24HR, CONT
     Route: 015
     Dates: start: 201301, end: 20140310
  2. METRONIDAZOLE. [Concomitant]
     Active Substance: METRONIDAZOLE
     Dosage: 500 MG, BID
     Dates: end: 20140402
  3. MIRENA [Suspect]
     Active Substance: LEVONORGESTREL
     Indication: MENORRHAGIA
     Dosage: 20 MCG/24HR, CONT
     Route: 015
     Dates: start: 20140319, end: 20140321

REACTIONS (6)
  - Drug ineffective for unapproved indication [None]
  - Menorrhagia [Not Recovered/Not Resolved]
  - Vaginal discharge [None]
  - Drug ineffective [None]
  - Device expulsion [Recovered/Resolved]
  - Vaginal infection [None]

NARRATIVE: CASE EVENT DATE: 201311
